FAERS Safety Report 5097753-9 (Version None)
Quarter: 2006Q3

REPORT INFORMATION
  Report Type: 
  Country: None (occurrence: None)
  Receive Date: 20060825
  Receipt Date: 20060811
  Transmission Date: 20061208
  Serious: Yes (Other)
  Sender: FDA-Public Use
  Company Number: USA-2006-0024913

PATIENT
  Age: 41 Year
  Sex: Male

DRUGS (4)
  1. MORPHINE SULFATE [Suspect]
     Indication: NEURALGIA
     Dosage: SEE IMAGE
     Route: 037
  2. CLONIDINE [Suspect]
     Indication: NEURALGIA
     Dosage: SEE IMAGE
     Route: 037
  3. AMITRIPTYLINE HCL [Suspect]
     Indication: NEURALGIA
     Dosage: 75 MG, DAILY,
  4. GABAPENTIN [Suspect]
     Indication: NEURALGIA
     Dosage: 1800 MG, DAILY,

REACTIONS (19)
  - ACCIDENTAL OVERDOSE [None]
  - ATELECTASIS [None]
  - CATHETER RELATED COMPLICATION [None]
  - DEPRESSED MOOD [None]
  - DEVICE DISLOCATION [None]
  - DRUG TOXICITY [None]
  - DRUG WITHDRAWAL SYNDROME [None]
  - FATIGUE [None]
  - GENERAL PHYSICAL HEALTH DETERIORATION [None]
  - HORNER'S SYNDROME [None]
  - HYPOAESTHESIA [None]
  - INADEQUATE ANALGESIA [None]
  - LUNG DISORDER [None]
  - MENTAL DISORDER [None]
  - MONOPLEGIA [None]
  - PHRENIC NERVE PARALYSIS [None]
  - RESPIRATORY ACIDOSIS [None]
  - RESPIRATORY DEPRESSION [None]
  - SLEEP DISORDER [None]
